FAERS Safety Report 5203358-9 (Version None)
Quarter: 2007Q1

REPORT INFORMATION
  Report Type: 
  Country: None (occurrence: None)
  Receive Date: 20070110
  Receipt Date: 20070103
  Transmission Date: 20070707
  Serious: Yes (Other)
  Sender: FDA-Public Use
  Company Number: FR-JNJFOC-20060902348

PATIENT
  Sex: Female
  Weight: 69 kg

DRUGS (8)
  1. RISPERDAL CONSTA [Suspect]
     Route: 030
     Dates: start: 20050527, end: 20060515
  2. RISPERDAL CONSTA [Suspect]
     Route: 030
     Dates: start: 20050527, end: 20060515
  3. RISPERDAL CONSTA [Suspect]
     Route: 030
     Dates: start: 20050527, end: 20060515
  4. RISPERDAL CONSTA [Suspect]
     Indication: DELUSION
     Route: 030
     Dates: start: 20050527, end: 20060515
  5. RISPERDAL [Suspect]
     Indication: DELUSION
     Route: 048
     Dates: start: 20050518, end: 20050614
  6. DEPAKOTE [Concomitant]
     Indication: AFFECTIVE DISORDER
  7. LORAZEPAM [Concomitant]
     Indication: ANXIETY
     Dosage: 1.75 TO 2.5 MG
  8. NOCTRAN [Concomitant]
     Indication: INSOMNIA

REACTIONS (3)
  - DYSARTHRIA [None]
  - EXTRAPYRAMIDAL DISORDER [None]
  - WEIGHT INCREASED [None]
